FAERS Safety Report 9834815 (Version 6)
Quarter: 2014Q3

REPORT INFORMATION
  Report Type: Spontaneous
  Country: US (occurrence: US)
  Receive Date: 20140122
  Receipt Date: 20140715
  Transmission Date: 20150326
  Serious: Yes (Hospitalization, Disabling, Other)
  Sender: FDA-Public Use
  Company Number: US-009507513-1106USA00670

PATIENT
  Sex: Female
  Weight: 66.21 kg

DRUGS (8)
  1. ALENDRONATE SODIUM. [Suspect]
     Active Substance: ALENDRONATE SODIUM
     Dosage: 70 MG, UNK
     Route: 048
     Dates: start: 201003, end: 201102
  2. VITAMINS (UNSPECIFIED) [Concomitant]
     Active Substance: VITAMINS
     Dosage: UNK
     Dates: start: 1980, end: 2000
  3. FOSAMAX [Suspect]
     Active Substance: ALENDRONATE SODIUM
     Indication: OSTEOPOROSIS
     Dosage: 70 MG, QW
     Route: 048
     Dates: start: 2004, end: 2007
  4. FOSAMAX [Suspect]
     Active Substance: ALENDRONATE SODIUM
     Indication: OSTEOPENIA
     Dosage: UNK
     Route: 048
     Dates: start: 19960507
  5. FOSAMAX [Suspect]
     Active Substance: ALENDRONATE SODIUM
     Indication: OSTEOPOROSIS
     Dosage: 70 MG, QW
     Route: 048
     Dates: end: 2011
  6. ALENDRONATE SODIUM. [Suspect]
     Active Substance: ALENDRONATE SODIUM
     Route: 048
  7. FOSAMAX [Suspect]
     Active Substance: ALENDRONATE SODIUM
     Dosage: 10 MG, UNK
     Route: 048
     Dates: start: 199605
  8. FOSAMAX [Suspect]
     Active Substance: ALENDRONATE SODIUM
     Indication: OSTEOPOROSIS

REACTIONS (74)
  - Open reduction of fracture [Unknown]
  - Deafness [Unknown]
  - Vision blurred [Unknown]
  - Low turnover osteopathy [Unknown]
  - Dysphonia [Unknown]
  - Fat necrosis [Unknown]
  - Wrist fracture [Unknown]
  - Hypercholesterolaemia [Unknown]
  - Tongue disorder [Unknown]
  - Pain in extremity [Unknown]
  - Arthralgia [Unknown]
  - Insomnia [Unknown]
  - Arthritis [Unknown]
  - Hiatus hernia [Unknown]
  - Spinal compression fracture [Unknown]
  - Cholelithiasis [Unknown]
  - Amnesia [Not Recovered/Not Resolved]
  - Tardive dyskinesia [Unknown]
  - Spinal disorder [Unknown]
  - Upper limb fracture [Unknown]
  - Fall [Unknown]
  - Skin cancer [Unknown]
  - Anxiety [Unknown]
  - Haemorrhoids [Unknown]
  - Peripheral venous disease [Unknown]
  - Hypertension [Unknown]
  - Arthritis [Unknown]
  - Device failure [Unknown]
  - Limb operation [Unknown]
  - Dyspepsia [Unknown]
  - Oedema peripheral [Unknown]
  - Muscle injury [Unknown]
  - Bone deformity [Unknown]
  - Pleural effusion [Recovered/Resolved]
  - Kyphosis [Unknown]
  - Adverse drug reaction [Unknown]
  - Ileus [Unknown]
  - Ocular icterus [Unknown]
  - Spinal compression fracture [Unknown]
  - Traumatic arthritis [Unknown]
  - Bladder operation [Unknown]
  - Bursitis [Unknown]
  - Arthralgia [Unknown]
  - Femur fracture [Unknown]
  - Foot fracture [Unknown]
  - Dyspnoea [Unknown]
  - Fatigue [Not Recovered/Not Resolved]
  - Weight decreased [Unknown]
  - Depression [Unknown]
  - Thrombophlebitis [Unknown]
  - Yellow skin [Unknown]
  - Blood potassium decreased [Unknown]
  - Irritable bowel syndrome [Unknown]
  - Pharyngeal oedema [Unknown]
  - Hip fracture [Not Recovered/Not Resolved]
  - Compression fracture [Unknown]
  - Urinary incontinence [Unknown]
  - Oesophageal disorder [Unknown]
  - Pruritus [Unknown]
  - Constipation [Unknown]
  - Decreased appetite [Unknown]
  - Gait disturbance [Unknown]
  - Dysphagia [Unknown]
  - Malignant melanoma [Unknown]
  - Tendon injury [Unknown]
  - Dystonia [Unknown]
  - Increased tendency to bruise [Unknown]
  - Adverse drug reaction [Unknown]
  - Large intestine polyp [Unknown]
  - Vision blurred [Unknown]
  - Tinnitus [Unknown]
  - Pain in extremity [Unknown]
  - Gastrooesophageal reflux disease [Unknown]
  - Headache [Unknown]

NARRATIVE: CASE EVENT DATE: 2000
